FAERS Safety Report 4802901-9 (Version None)
Quarter: 2005Q4

REPORT INFORMATION
  Report Type: 
  Country: None (occurrence: None)
  Receive Date: 20051013
  Receipt Date: 20050930
  Transmission Date: 20060501
  Serious: Yes (Life-Threatening, Hospitalization)
  Sender: FDA-Public Use
  Company Number: 05-02-06437

PATIENT
  Age: 56 Year
  Sex: Male

DRUGS (2)
  1. CETUXIMAB (CETUXIMAB) [Suspect]
     Indication: COLORECTAL CANCER METASTATIC
     Dosage: 400 MG/M2 X1 I.V.
     Route: 042
     Dates: start: 20050928, end: 20050928
  2. ATROPINE [Suspect]
     Indication: DRUG USE FOR UNKNOWN INDICATION
     Dosage: 1 MG
     Dates: start: 20050928, end: 20050928

REACTIONS (4)
  - CIRCULATORY COLLAPSE [None]
  - HYPOXIA [None]
  - PULMONARY EMBOLISM [None]
  - SHOCK [None]
